FAERS Safety Report 12052922 (Version 1)
Quarter: 2016Q1

REPORT INFORMATION
  Report Type: Report from Study
  Country: FR (occurrence: FR)
  Receive Date: 20160209
  Receipt Date: 20160209
  Transmission Date: 20160526
  Serious: Yes (Death, Life-Threatening, Hospitalization, Other)
  Sender: FDA-Public Use
  Company Number: FR-BRISTOL-MYERS SQUIBB COMPANY-BMS-2016-005841

PATIENT
  Age: 50 Year
  Sex: Male
  Weight: 87 kg

DRUGS (9)
  1. RIBAVIRIN MYLAN [Suspect]
     Active Substance: RIBAVIRIN
     Indication: HEPATITIS C
  2. CORTANCYL [Concomitant]
     Active Substance: PREDNISONE
     Indication: TRANSPLANT REJECTION
     Dosage: 2.5 MG, UNK
     Route: 065
     Dates: start: 20080823, end: 20160109
  3. NOVORAPID [Concomitant]
     Active Substance: INSULIN ASPART
     Indication: DIABETES MELLITUS
     Dosage: 4 IU, TID
     Route: 065
     Dates: start: 201502
  4. SOFOSBUVIR [Suspect]
     Active Substance: SOFOSBUVIR
     Indication: HEPATITIS C
  5. DACLATASVIR DIHYDROCHLORIDE [Suspect]
     Active Substance: DACLATASVIR DIHYDROCHLORIDE
     Indication: HEPATITIS C
  6. ADVAGRAF [Concomitant]
     Active Substance: TACROLIMUS
     Indication: TRANSPLANT REJECTION
     Dosage: 1.5 MG, UNK
     Route: 065
     Dates: start: 20080823, end: 20160109
  7. CELLCEPT [Concomitant]
     Active Substance: MYCOPHENOLATE MOFETIL\MYCOPHENOLATE MOFETIL HYDROCHLORIDE
     Indication: TRANSPLANT REJECTION
     Dosage: 500 MG, BID
     Route: 065
     Dates: start: 20080823, end: 20160109
  8. APROVEL [Concomitant]
     Active Substance: IRBESARTAN
     Indication: HYPERTENSION
     Dosage: 150 MG, QD
     Route: 065
     Dates: start: 20080823, end: 201601
  9. LANTUS [Concomitant]
     Active Substance: INSULIN GLARGINE
     Indication: DIABETES MELLITUS
     Dosage: 14 UNIT, QD
     Route: 065
     Dates: start: 201502

REACTIONS (8)
  - Mucormycosis [Fatal]
  - Pulmonary infarction [Unknown]
  - Haemoptysis [Unknown]
  - Bronchial disorder [Unknown]
  - Lung disorder [Unknown]
  - Acute kidney injury [Unknown]
  - Anaemia [Unknown]
  - Pulmonary embolism [Unknown]

NARRATIVE: CASE EVENT DATE: 201502
